FAERS Safety Report 20866843 (Version 1)
Quarter: 2022Q2

REPORT INFORMATION
  Report Type: Spontaneous
  Country: US (occurrence: None)
  Receive Date: 20220524
  Receipt Date: 20220524
  Transmission Date: 20220721
  Serious: Yes (Hospitalization)
  Sender: FDA-Public Use
  Company Number: 2022A189618

PATIENT
  Sex: Female
  Weight: 63.3 kg

DRUGS (2)
  1. SYMBICORT [Suspect]
     Active Substance: BUDESONIDE\FORMOTEROL FUMARATE DIHYDRATE
     Indication: Asthma
     Dosage: 160/4.5 MCG, UNKNOWN FREQUENCY UNKNOWN
     Route: 055
  2. SYMBICORT [Suspect]
     Active Substance: BUDESONIDE\FORMOTEROL FUMARATE DIHYDRATE
     Indication: Asthma
     Dosage: 80/4.5 MCG, UNKNOWN FREQUENCY UNKNOWN
     Route: 055
     Dates: start: 20220504

REACTIONS (11)
  - Asthma [Unknown]
  - Cellulitis [Unknown]
  - Skin infection [Unknown]
  - Fatigue [Unknown]
  - Immune system disorder [Unknown]
  - Thyroid disorder [Unknown]
  - Adrenal disorder [Unknown]
  - Vitamin D deficiency [Unknown]
  - Cataract [Unknown]
  - Osteoporosis [Unknown]
  - Osteopenia [Unknown]
